FAERS Safety Report 11164555 (Version 1)
Quarter: 2015Q2

REPORT INFORMATION
  Report Type: Spontaneous
  Country: US (occurrence: None)
  Receive Date: 20150603
  Receipt Date: 20150603
  Transmission Date: 20150821
  Serious: Yes (Hospitalization)
  Sender: FDA-Public Use
  Company Number: None

PATIENT
  Age: 67 Year
  Sex: Male
  Weight: 96.9 kg

DRUGS (2)
  1. CARBOPLATIN. [Suspect]
     Active Substance: CARBOPLATIN
     Dates: end: 20150112
  2. TAXOL [Suspect]
     Active Substance: PACLITAXEL
     Dates: end: 20150112

REACTIONS (1)
  - Hypoxia [None]

NARRATIVE: CASE EVENT DATE: 20150312
